FAERS Safety Report 9332091 (Version 2)
Quarter: 2013Q4

REPORT INFORMATION
  Report Type: Spontaneous
  Country: DK (occurrence: DK)
  Receive Date: 20130605
  Receipt Date: 20131219
  Transmission Date: 20140711
  Serious: No
  Sender: FDA-Public Use
  Company Number: DK-AMGEN-DNKSP2013039453

PATIENT
  Age: 62 Year
  Sex: Female
  Weight: 50 kg

DRUGS (2)
  1. PROLIA [Suspect]
     Indication: OSTEOPOROSIS
     Dosage: 60 MG, Q6MO
     Route: 058
     Dates: start: 20130106
  2. UNIKALK BASIC [Concomitant]
     Dosage: 1 UNK, BID
     Route: 048
     Dates: start: 2009

REACTIONS (6)
  - Subcutaneous abscess [Unknown]
  - Ear infection [Recovered/Resolved]
  - Sinusitis [Recovered/Resolved]
  - Infection [Recovered/Resolved]
  - Pharyngitis [Recovered/Resolved]
  - Upper respiratory tract infection [Recovered/Resolved]
